FAERS Safety Report 7243378-6 (Version None)
Quarter: 2011Q1

REPORT INFORMATION
  Report Type: 
  Country: None (occurrence: None)
  Receive Date: 20110125
  Receipt Date: 20110112
  Transmission Date: 20110831
  Serious: Yes (Hospitalization)
  Sender: FDA-Public Use
  Company Number: AT-ELI_LILLY_AND_COMPANY-AT201101004518

PATIENT
  Sex: Male
  Weight: 70 kg

DRUGS (1)
  1. PRASUGREL HYDROCHLORIDE [Suspect]
     Indication: ACUTE MYOCARDIAL INFARCTION
     Dosage: UNK, UNKNOWN
     Route: 065

REACTIONS (1)
  - ANGINA PECTORIS [None]
